FAERS Safety Report 20781791 (Version 6)
Quarter: 2022Q3

REPORT INFORMATION
  Report Type: Report from Study
  Country: US (occurrence: US)
  Receive Date: 20220504
  Receipt Date: 20220827
  Transmission Date: 20221026
  Serious: Yes (Other)
  Sender: FDA-Public Use
  Company Number: US-NOVARTISPH-NVSC2022US099537

PATIENT
  Sex: Female
  Weight: 96.24 kg

DRUGS (3)
  1. ENTRESTO [Suspect]
     Active Substance: SACUBITRIL\VALSARTAN
     Indication: Cardiomyopathy
     Dosage: 1 DOSAGE FORM (49/51 MG), BID
     Route: 048
     Dates: start: 20220225
  2. ENTRESTO [Suspect]
     Active Substance: SACUBITRIL\VALSARTAN
     Indication: Cardiac failure congestive
     Dosage: 0.25 DOSAGE FORM (1/4 TABLET SPLITTING), BID
     Route: 065
  3. ENTRESTO [Suspect]
     Active Substance: SACUBITRIL\VALSARTAN
     Dosage: 1 DOSAGE FORM (49/51 MG), BID
     Route: 048

REACTIONS (14)
  - Diabetes mellitus [Unknown]
  - Back pain [Unknown]
  - Gait disturbance [Unknown]
  - Dyspnoea [Unknown]
  - Decreased activity [Unknown]
  - Glycosylated haemoglobin increased [Unknown]
  - Exostosis [Unknown]
  - Hyperkeratosis [Unknown]
  - Oedema peripheral [Unknown]
  - Hypersensitivity [Unknown]
  - Cough [Unknown]
  - Blood pressure decreased [Recovering/Resolving]
  - Heart rate decreased [Recovering/Resolving]
  - Wrong technique in product usage process [Unknown]
